FAERS Safety Report 4483716-0 (Version None)
Quarter: 2004Q4

REPORT INFORMATION
  Report Type: 
  Country: None (occurrence: None)
  Receive Date: 20041020
  Receipt Date: 20041008
  Transmission Date: 20050328
  Serious: Yes (Life-Threatening, Hospitalization, Other)
  Sender: FDA-Public Use
  Company Number: HQWYE702711OCT04

PATIENT
  Age: 65 Year
  Sex: Female

DRUGS (2)
  1. EFFEXOR XR [Suspect]
     Dosage: ORAL
     Route: 048
     Dates: start: 20040929, end: 20041001
  2. PREDNISONE [Concomitant]

REACTIONS (3)
  - COMA [None]
  - INAPPROPRIATE ANTIDIURETIC HORMONE SECRETION [None]
  - UNEVALUABLE EVENT [None]
